FAERS Safety Report 4435972-2 (Version None)
Quarter: 2004Q3

REPORT INFORMATION
  Report Type: 
  Country: None (occurrence: None)
  Receive Date: 20040826
  Receipt Date: 20040820
  Transmission Date: 20050211
  Serious: Yes (Death)
  Sender: FDA-Public Use
  Company Number: OMPQ-PR-0408S-1125

PATIENT
  Sex: Male

DRUGS (1)
  1. OMNIPAQUE 180 [Suspect]
     Dosage: SINGLE DOSE, I.A.
     Route: 013
     Dates: start: 20040819, end: 20040819

REACTIONS (3)
  - CARDIAC ARREST [None]
  - CONTRAST MEDIA REACTION [None]
  - RESPIRATORY ARREST [None]
